FAERS Safety Report 7200831-9 (Version None)
Quarter: 2010Q4

REPORT INFORMATION
  Report Type: 
  Country: None (occurrence: None)
  Receive Date: 20101228
  Receipt Date: 20101216
  Transmission Date: 20110411
  Serious: Yes (Other)
  Sender: FDA-Public Use
  Company Number: US-PFIZER INC-2010174409

PATIENT
  Sex: Female

DRUGS (14)
  1. NEURONTIN [Suspect]
     Dosage: UNK
  2. CYMBALTA [Concomitant]
     Dosage: UNK
  3. CLONAZEPAM [Concomitant]
     Dosage: UNK
  4. SIMVASTATIN [Concomitant]
     Dosage: UNK
  5. GEMFIBROZIL [Concomitant]
     Dosage: UNK
  6. SYNTHROID [Concomitant]
     Dosage: UNK
  7. PROPRANOLOL [Concomitant]
     Dosage: UNK
  8. METFORMIN [Concomitant]
     Dosage: UNK
  9. ZANAFLEX [Concomitant]
     Dosage: UNK
  10. BOTOX [Concomitant]
     Dosage: UNK
  11. CLARITIN [Concomitant]
     Dosage: UNK
  12. BENADRYL [Concomitant]
     Dosage: UNK
  13. SUDAFED 12 HOUR [Concomitant]
     Dosage: UNK
  14. MULTI-VITAMINS [Concomitant]
     Dosage: UNK

REACTIONS (8)
  - AGITATION [None]
  - AMNESIA [None]
  - CLAUSTROPHOBIA [None]
  - LOSS OF CONSCIOUSNESS [None]
  - NIGHTMARE [None]
  - PAIN [None]
  - PARAESTHESIA [None]
  - SPONDYLITIS [None]
